FAERS Safety Report 8909230 (Version 1)
Quarter: 2012Q4

REPORT INFORMATION
  Report Type: Spontaneous
  Country: DK (occurrence: None)
  Receive Date: 20121107
  Receipt Date: 20121107
  Transmission Date: 20130627
  Serious: Yes (Hospitalization)
  Sender: FDA-Public Use
  Company Number: 2012MA012870

PATIENT
  Age: 23 Year
  Sex: Male

DRUGS (1)
  1. DOXYCYCLINE HYCLATE [Suspect]
     Indication: EPIDIDYMO-ORCHITIS
     Route: 048
     Dates: start: 20121002, end: 20121011

REACTIONS (4)
  - Headache [None]
  - Photophobia [None]
  - Nausea [None]
  - Vision blurred [None]
